FAERS Safety Report 17728038 (Version 1)
Quarter: 2020Q2

REPORT INFORMATION
  Report Type: Report from Study
  Country: RO (occurrence: RO)
  Receive Date: 20200430
  Receipt Date: 20200430
  Transmission Date: 20200714
  Serious: Yes (Other)
  Sender: FDA-Public Use
  Company Number: RO-GILEAD-2020-0461680

PATIENT
  Age: 79 Year
  Sex: Female

DRUGS (3)
  1. TERTENSIF [Concomitant]
     Active Substance: INDAPAMIDE
  2. ATACAND [Concomitant]
     Active Substance: CANDESARTAN CILEXETIL
  3. LEDIPASVIR/SOFOSBUVIR [Suspect]
     Active Substance: LEDIPASVIR\SOFOSBUVIR
     Indication: CHRONIC HEPATITIS C
     Dosage: 1 DOSAGE FORM, QD
     Route: 048
     Dates: start: 20200227, end: 20200422

REACTIONS (4)
  - Choking [Not Recovered/Not Resolved]
  - Blood pressure increased [Recovered/Resolved]
  - Feeling hot [Not Recovered/Not Resolved]
  - Panic attack [Not Recovered/Not Resolved]
